FAERS Safety Report 6957016-0 (Version None)
Quarter: 2010Q3

REPORT INFORMATION
  Report Type: 
  Country: None (occurrence: None)
  Receive Date: 20100827
  Receipt Date: 20100827
  Transmission Date: 20110219
  Serious: Yes (Other)
  Sender: FDA-Public Use
  Company Number: None

PATIENT
  Sex: Male

DRUGS (1)
  1. KETOROLAC TROMETHAMINE [Suspect]
     Indication: MACULAR OEDEMA
     Dosage: 1 GTT QID OPHTHALMIC
     Route: 047
     Dates: start: 20100730, end: 20100809

REACTIONS (2)
  - KERATITIS [None]
  - VISUAL ACUITY REDUCED [None]
